FAERS Safety Report 4737426-2 (Version None)
Quarter: 2005Q3

REPORT INFORMATION
  Report Type: 
  Country: None (occurrence: None)
  Receive Date: 20050803
  Receipt Date: 20050712
  Transmission Date: 20060218
  Serious: Yes (Hospitalization)
  Sender: FDA-Public Use
  Company Number: CA_050708438

PATIENT
  Sex: Male

DRUGS (1)
  1. HUMUIN-HUMAN INSULIN (RDNA) :30% REGULAR, 70% NPH (H [Suspect]
     Indication: DIABETES MELLITUS

REACTIONS (2)
  - ADVERSE EVENT [None]
  - PHARMACEUTICAL PRODUCT COMPLAINT [None]
